FAERS Safety Report 6454774-9 (Version None)
Quarter: 2009Q4

REPORT INFORMATION
  Report Type: 
  Country: None (occurrence: None)
  Receive Date: 20091118
  Receipt Date: 20090922
  Transmission Date: 20100525
  Serious: Yes (Other)
  Sender: FDA-Public Use
  Company Number: 2009SP026630

PATIENT
  Sex: Female

DRUGS (1)
  1. PUREGON (FOLLITROPIN BETA) (FOLLITROPIN BETA) [Suspect]
     Dosage: 150 IU;

REACTIONS (1)
  - THYROID NEOPLASM [None]
